FAERS Safety Report 12994214 (Version 1)
Quarter: 2016Q4

REPORT INFORMATION
  Report Type: Spontaneous
  Country: US (occurrence: US)
  Receive Date: 20161201
  Receipt Date: 20161201
  Transmission Date: 20170207
  Serious: Yes (Disabling)
  Sender: FDA-Public Use
  Company Number: None

PATIENT
  Age: 42 Year
  Sex: Male
  Weight: 83.7 kg

DRUGS (11)
  1. L-ARGININE [Concomitant]
     Active Substance: ARGININE
  2. MAGNESIUM [Concomitant]
     Active Substance: MAGNESIUM
  3. L-CITRULLINE [Concomitant]
     Active Substance: CITRULLINE
  4. CIALIS [Concomitant]
     Active Substance: TADALAFIL
  5. METHYLFOLATE [Concomitant]
  6. FINASTERIDE. [Suspect]
     Active Substance: FINASTERIDE
     Indication: ALOPECIA
     Dosage: ?          QUANTITY:1 TABLET(S);?
     Route: 048
     Dates: start: 20160601, end: 20160708
  7. VITAMIN K2 [Concomitant]
     Active Substance: MENAQUINONE 6
  8. VITAMIN B12 [Concomitant]
     Active Substance: CYANOCOBALAMIN
  9. L-CARNITINE [Concomitant]
     Active Substance: LEVOCARNITINE
  10. ZINC [Concomitant]
     Active Substance: ZINC\ZINC CHLORIDE
  11. VITAMIN D3 [Concomitant]
     Active Substance: CHOLECALCIFEROL

REACTIONS (3)
  - Tinnitus [None]
  - Sexual dysfunction [None]
  - Cognitive disorder [None]

NARRATIVE: CASE EVENT DATE: 20160708
